FAERS Safety Report 6671915-9 (Version None)
Quarter: 2010Q2

REPORT INFORMATION
  Report Type: 
  Country: None (occurrence: None)
  Receive Date: 20100407
  Receipt Date: 20100326
  Transmission Date: 20101027
  Serious: Yes (Death)
  Sender: FDA-Public Use
  Company Number: US-MYLANLABS-2010S1005336

PATIENT
  Age: 69 Year
  Sex: Male

DRUGS (2)
  1. DURAGESIC-100 [Suspect]
  2. FENTANYL CITRATE [Suspect]

REACTIONS (1)
  - DRUG TOXICITY [None]
